FAERS Safety Report 4668938-8 (Version None)
Quarter: 2005Q2

REPORT INFORMATION
  Report Type: 
  Country: None (occurrence: None)
  Receive Date: 20050523
  Receipt Date: 20050513
  Transmission Date: 20051028
  Serious: Yes (Hospitalization)
  Sender: FDA-Public Use
  Company Number: US-BRISTOL-MYERS SQUIBB COMPANY-12971339

PATIENT
  Age: 5 Decade
  Sex: Female

DRUGS (10)
  1. SERZONE [Suspect]
     Indication: DEPRESSION
  2. HALDOL [Concomitant]
  3. AMBIEN [Concomitant]
  4. LORTAB [Concomitant]
     Indication: PAIN
  5. K-DUR 10 [Concomitant]
  6. LASIX [Concomitant]
  7. COGENTIN [Concomitant]
  8. METFORMIN HCL [Concomitant]
  9. BENAZEPRIL HCL [Concomitant]
  10. METHOTREXATE [Concomitant]

REACTIONS (9)
  - CARDIAC FAILURE CONGESTIVE [None]
  - CELLULITIS [None]
  - DERMATITIS [None]
  - DIABETES MELLITUS INADEQUATE CONTROL [None]
  - MAJOR DEPRESSION [None]
  - PAIN [None]
  - RENAL FAILURE ACUTE [None]
  - RHEUMATOID ARTHRITIS [None]
  - SUICIDAL IDEATION [None]
